FAERS Safety Report 7980894-3 (Version None)
Quarter: 2011Q4

REPORT INFORMATION
  Report Type: 
  Country: None (occurrence: None)
  Receive Date: 20111215
  Receipt Date: 20111206
  Transmission Date: 20120403
  Serious: Yes (Hospitalization)
  Sender: FDA-Public Use
  Company Number: JP-BRISTOL-MYERS SQUIBB COMPANY-16284879

PATIENT
  Age: 84 Year
  Sex: Male

DRUGS (2)
  1. CONTRAST AGENT [Suspect]
     Indication: SCAN WITH CONTRAST
     Dates: start: 20111125
  2. METFORMIN HCL [Suspect]
     Route: 048
     Dates: end: 20111130

REACTIONS (1)
  - RENAL FAILURE [None]
